FAERS Safety Report 4683833-6 (Version None)
Quarter: 2005Q2

REPORT INFORMATION
  Report Type: 
  Country: None (occurrence: None)
  Receive Date: 20050606
  Receipt Date: 20050606
  Transmission Date: 20051028
  Serious: Yes (Other)
  Sender: FDA-Public Use
  Company Number: None

PATIENT
  Age: 64 Year

DRUGS (2)
  1. THEOPHYLLINE [Suspect]
     Indication: ASTHMA
     Dosage: 200MG  BID
  2. COMBIVENT [Concomitant]

REACTIONS (2)
  - DRUG LEVEL INCREASED [None]
  - DYSPNOEA [None]
